FAERS Safety Report 23597450 (Version 1)
Quarter: 2024Q1

REPORT INFORMATION
  Report Type: Spontaneous
  Country: US (occurrence: US)
  Receive Date: 20240305
  Receipt Date: 20240305
  Transmission Date: 20240410
  Serious: Yes (Other)
  Sender: FDA-Public Use
  Company Number: US-UCBSA-2024010301

PATIENT
  Age: 32 Year
  Sex: Male

DRUGS (1)
  1. MIDAZOLAM [Suspect]
     Active Substance: MIDAZOLAM
     Indication: Seizure
     Dosage: UNK

REACTIONS (3)
  - Ventricular fibrillation [Recovered/Resolved]
  - Hypotension [Unknown]
  - Endotracheal intubation [Unknown]
